FAERS Safety Report 5625296-X (Version None)
Quarter: 2008Q1

REPORT INFORMATION
  Report Type: 
  Country: None (occurrence: None)
  Receive Date: 20080213
  Receipt Date: 20080129
  Transmission Date: 20080703
  Serious: Yes (Hospitalization, Other)
  Sender: FDA-Public Use
  Company Number: PHBS2007JP21501

PATIENT
  Age: 74 Year
  Sex: Male
  Weight: 56 kg

DRUGS (35)
  1. NEORAL [Suspect]
     Indication: PEMPHIGOID
     Dosage: 150 MG/D
     Route: 048
     Dates: start: 20060906
  2. NEORAL [Suspect]
     Dosage: 150 MG/D
     Route: 048
     Dates: start: 20071127, end: 20071204
  3. NEORAL [Suspect]
     Dosage: 200 MG/D
     Route: 048
     Dates: start: 20071204
  4. NEORAL [Suspect]
     Dosage: 150 MG/D
     Route: 048
     Dates: start: 20061222
  5. NEORAL [Suspect]
     Dosage: 100 MG/D
     Route: 048
     Dates: start: 20070904
  6. NEORAL [Suspect]
     Dosage: 100 MG/D
     Route: 048
     Dates: start: 20061013
  7. STEROIDS NOS [Concomitant]
     Indication: PEMPHIGOID
     Dosage: UNK, UNK
     Dates: start: 20060101
  8. PREDONINE [Concomitant]
     Indication: PEMPHIGOID
     Dosage: 30 MG/D
     Route: 048
     Dates: start: 20060810
  9. PREDONINE [Concomitant]
     Dosage: 45 MG, UNK
     Route: 048
  10. PREDONINE [Concomitant]
     Dosage: 25MG/DAY
     Dates: start: 20060819
  11. PREDONINE [Concomitant]
     Dosage: 20MG/DAY
     Dates: start: 20060823
  12. PREDONINE [Concomitant]
     Dosage: 30MG/DAY
     Dates: start: 20060906
  13. PREDONINE [Concomitant]
     Dosage: 15MG/DAY
     Dates: start: 20061006
  14. PREDONINE [Concomitant]
     Dosage: 12.5MG/DAY
     Dates: start: 20061027
  15. PREDONINE [Concomitant]
     Dosage: 25MG/DAY
     Dates: start: 20061116
  16. PREDONINE [Concomitant]
     Dosage: 20MG/DAY
     Dates: start: 20061124
  17. PREDONINE [Concomitant]
     Dosage: 15MG/DAY
  18. PREDONINE [Concomitant]
     Dosage: 17.5MG/DAY
     Dates: start: 20070216
  19. PREDONINE [Concomitant]
     Dosage: 15MG/DAY
     Dates: start: 20070302
  20. PREDONINE [Concomitant]
     Dosage: 12.5MG/DAY
     Dates: start: 20070316
  21. PREDONINE [Concomitant]
     Dosage: 15MG/DAY
     Dates: start: 20070417
  22. PREDONINE [Concomitant]
     Dosage: 12.5MG/DAY
     Dates: start: 20070508
  23. PREDONINE [Concomitant]
     Dosage: 7.5MG/DAY
     Dates: start: 20070904
  24. PREDONINE [Concomitant]
     Dosage: 5MG/DAY
     Dates: start: 20071016
  25. PREDONINE [Concomitant]
     Dosage: 10MG/DAY
     Dates: start: 20071116
  26. PREDONINE [Concomitant]
     Dosage: 30MG/DAY
     Dates: start: 20071120
  27. PREDONINE [Concomitant]
     Dosage: 45MG/DAY
     Dates: start: 20071207
  28. MINOMYCIN [Concomitant]
     Indication: PEMPHIGOID
     Dosage: 200 MG/DAY
     Route: 048
     Dates: start: 20060906
  29. MINOMYCIN [Concomitant]
     Dosage: 100 MG/DAY
     Route: 048
     Dates: start: 20061013
  30. MINOMYCIN [Concomitant]
     Dosage: 200 MG/D
     Route: 048
     Dates: start: 20071127
  31. NICOTINAMIDE [Concomitant]
     Indication: PEMPHIGOID
     Dosage: 200 MG, UNK
     Route: 048
     Dates: start: 20060906
  32. ALLELOCK [Concomitant]
     Indication: PEMPHIGOID
     Route: 048
  33. OLMETEC [Concomitant]
     Indication: HYPERTENSION
     Route: 048
  34. PARIET [Concomitant]
     Indication: PROPHYLAXIS AGAINST GASTROINTESTINAL ULCER
     Route: 048
  35. RISEDRONATE SODIUM [Concomitant]
     Indication: OSTEOPOROSIS PROPHYLAXIS
     Route: 048

REACTIONS (8)
  - BLISTER [None]
  - BLOOD OSMOLARITY DECREASED [None]
  - BLOOD SODIUM DECREASED [None]
  - DISEASE PROGRESSION [None]
  - ERYTHEMA [None]
  - HYPONATRAEMIA [None]
  - INAPPROPRIATE ANTIDIURETIC HORMONE SECRETION [None]
  - WHITE BLOOD CELL COUNT INCREASED [None]
